FAERS Safety Report 24436534 (Version 2)
Quarter: 2025Q1

REPORT INFORMATION
  Report Type: Spontaneous
  Country: US (occurrence: US)
  Receive Date: 20241015
  Receipt Date: 20250115
  Transmission Date: 20250409
  Serious: No
  Sender: BRISTOL-MYERS SQUIBB COMPANY
  Company Number: US-BRISTOL-MYERS SQUIBB COMPANY-2024-160437

PATIENT
  Age: 69 Year
  Sex: Female

DRUGS (2)
  1. ORENCIA [Suspect]
     Active Substance: ABATACEPT
     Indication: Product used for unknown indication
     Route: 058
  2. METHYLPREDNISOLONE [Suspect]
     Active Substance: METHYLPREDNISOLONE
     Indication: Product used for unknown indication

REACTIONS (6)
  - Palpitations [Unknown]
  - Flushing [Unknown]
  - Burning sensation [Unknown]
  - Lip swelling [Unknown]
  - Lip pruritus [Unknown]
  - Hypersensitivity [Unknown]
